FAERS Safety Report 10249432 (Version 1)
Quarter: 2014Q2

REPORT INFORMATION
  Report Type: Spontaneous
  Country: US (occurrence: None)
  Receive Date: 20140516
  Receipt Date: 20140516
  Transmission Date: 20141212
  Serious: Yes (Other)
  Sender: FDA-Public Use
  Company Number: E2007-01561-SPO-US

PATIENT
  Age: 7 Year
  Sex: Male

DRUGS (2)
  1. FYCOMPA [Suspect]
     Indication: EPILEPSY
     Route: 048
     Dates: start: 201402, end: 201402
  2. MULTIPLE ANTIEPILEPTIC MEDICATIONS (ANTIEPILEPTICS) [Concomitant]

REACTIONS (2)
  - Convulsion [None]
  - Somnolence [None]
